FAERS Safety Report 6901705-0 (Version None)
Quarter: 2010Q3

REPORT INFORMATION
  Report Type: 
  Country: None (occurrence: None)
  Receive Date: 20100803
  Receipt Date: 20080313
  Transmission Date: 20110219
  Serious: Yes (Other)
  Sender: FDA-Public Use
  Company Number: US-PFIZER INC-2008007972

PATIENT
  Sex: Female

DRUGS (6)
  1. LYRICA [Suspect]
     Indication: PAIN
     Dates: start: 20070101
  2. LYRICA [Suspect]
     Indication: HEADACHE
  3. DOXYCYCLINE [Suspect]
     Indication: LYME DISEASE
  4. PERCOCET [Concomitant]
  5. NEURONTIN [Concomitant]
  6. ROBAXIN [Concomitant]

REACTIONS (1)
  - PANCREATITIS [None]
